FAERS Safety Report 14562843 (Version 1)
Quarter: 2018Q1

REPORT INFORMATION
  Report Type: Spontaneous
  Country: US (occurrence: US)
  Receive Date: 20180221
  Receipt Date: 20180221
  Transmission Date: 20180509
  Serious: Yes (Other)
  Sender: FDA-Public Use
  Company Number: None

PATIENT
  Weight: 103.5 kg

DRUGS (14)
  1. SYNTHROID [Concomitant]
     Active Substance: LEVOTHYROXINE SODIUM
  2. ZONISAMIDE. [Concomitant]
     Active Substance: ZONISAMIDE
  3. NORTRIPTYLIN [Concomitant]
     Active Substance: NORTRIPTYLINE
  4. FROLIC ACID [Concomitant]
  5. VITB-12 [Concomitant]
  6. VITD [Concomitant]
  7. CYMBALTA [Suspect]
     Active Substance: DULOXETINE HYDROCHLORIDE
     Indication: DEPRESSION
     Dosage: ?          QUANTITY:2 CAPSULE(S);?
     Route: 048
     Dates: start: 20110430, end: 20130830
  8. CYMBALTA [Suspect]
     Active Substance: DULOXETINE HYDROCHLORIDE
     Indication: FIBROMYALGIA
     Dosage: ?          QUANTITY:2 CAPSULE(S);?
     Route: 048
     Dates: start: 20110430, end: 20130830
  9. WELLBUTRIN [Concomitant]
     Active Substance: BUPROPION HYDROCHLORIDE
  10. PROZAC [Concomitant]
     Active Substance: FLUOXETINE HYDROCHLORIDE
  11. PRAVASTATIN SEQUE [Concomitant]
  12. MONTELUKAST [Concomitant]
     Active Substance: MONTELUKAST SODIUM
  13. MICROGESTIN [Concomitant]
     Active Substance: ETHINYL ESTRADIOL\NORETHINDRONE ACETATE
  14. BYSTOLOIC [Concomitant]

REACTIONS (7)
  - Paraesthesia [None]
  - Loss of consciousness [None]
  - Central nervous system lesion [None]
  - Fall [None]
  - Feeling abnormal [None]
  - Vision blurred [None]
  - Headache [None]

NARRATIVE: CASE EVENT DATE: 20130812
